FAERS Safety Report 23677728 (Version 1)
Quarter: 2024Q1

REPORT INFORMATION
  Report Type: Spontaneous
  Country: FR (occurrence: FR)
  Receive Date: 20240327
  Receipt Date: 20240327
  Transmission Date: 20240410
  Serious: Yes (Hospitalization)
  Sender: FDA-Public Use
  Company Number: None

PATIENT
  Age: 35 Year
  Sex: Female
  Weight: 67 kg

DRUGS (1)
  1. CABERGOLINE [Suspect]
     Active Substance: CABERGOLINE
     Dosage: 0.5 MG, SINGLE
     Route: 048
     Dates: start: 20240221, end: 20240221

REACTIONS (3)
  - Product administration error [Recovered/Resolved]
  - Incorrect dose administered [Recovered/Resolved]
  - Transient ischaemic attack [Recovered/Resolved]

NARRATIVE: CASE EVENT DATE: 20240221
